FAERS Safety Report 9850955 (Version 2)
Quarter: 2014Q1

REPORT INFORMATION
  Report Type: Report from Study
  Country: US (occurrence: US)
  Receive Date: 20140128
  Receipt Date: 20140207
  Transmission Date: 20141002
  Serious: Yes (Hospitalization, Other)
  Sender: FDA-Public Use
  Company Number: US-ACTELION-A-US2014-93885

PATIENT
  Age: 66 Year
  Sex: Male

DRUGS (2)
  1. TRACLEER [Suspect]
     Indication: PULMONARY ARTERIAL HYPERTENSION
     Dosage: UNK
     Route: 048
     Dates: end: 20140119
  2. COUMADIN [Concomitant]

REACTIONS (7)
  - Dysuria [Unknown]
  - Liver function test abnormal [Unknown]
  - Blood bilirubin increased [Unknown]
  - Blood alkaline phosphatase increased [Unknown]
  - Cellulitis [Recovering/Resolving]
  - Arthralgia [Recovering/Resolving]
  - Swelling [Recovering/Resolving]
